FAERS Safety Report 4490932-0 (Version None)
Quarter: 2004Q4

REPORT INFORMATION
  Report Type: 
  Country: None (occurrence: None)
  Receive Date: 20041027
  Receipt Date: 20041013
  Transmission Date: 20050328
  Serious: Yes (Death, Hospitalization)
  Sender: FDA-Public Use
  Company Number: CERZ-10683

PATIENT
  Age: 71 Year
  Sex: Male
  Weight: 60.7 kg

DRUGS (1)
  1. CEREZYME [Suspect]
     Indication: GAUCHER'S DISEASE
     Dosage: 3600 UNITS Q2WKS IV
     Route: 042
     Dates: start: 19941116, end: 20020606

REACTIONS (2)
  - DEMENTIA ALZHEIMER'S TYPE [None]
  - PARKINSON'S DISEASE [None]
